FAERS Safety Report 22069242 (Version 2)
Quarter: 2023Q1

REPORT INFORMATION
  Report Type: Report from Study
  Country: US (occurrence: US)
  Receive Date: 20230307
  Receipt Date: 20230313
  Transmission Date: 20230418
  Serious: Yes (Death, Hospitalization, Other)
  Sender: FDA-Public Use
  Company Number: US-TAKEDA-2023TUS020555

PATIENT
  Age: 28 Year
  Sex: Female
  Weight: 104 kg

DRUGS (5)
  1. MOBOCERTINIB [Suspect]
     Active Substance: MOBOCERTINIB
     Indication: Lung neoplasm malignant
     Dosage: 160 MILLIGRAM, QD
     Route: 048
     Dates: start: 20230222
  2. MOBOCERTINIB [Suspect]
     Active Substance: MOBOCERTINIB
     Indication: Bone cancer
     Dosage: 80 MILLIGRAM, QD
     Route: 065
     Dates: start: 202301
  3. MOBOCERTINIB [Suspect]
     Active Substance: MOBOCERTINIB
     Indication: Lung neoplasm malignant
  4. LASIX [Concomitant]
     Active Substance: FUROSEMIDE
     Dosage: UNK
     Route: 065
  5. IMODIUM [Concomitant]
     Active Substance: LOPERAMIDE HYDROCHLORIDE
     Dosage: UNK
     Route: 065

REACTIONS (11)
  - Death [Fatal]
  - Feeling hot [Unknown]
  - Blood pressure decreased [Unknown]
  - Sepsis [Unknown]
  - Feeding disorder [Unknown]
  - Haemoglobin decreased [Unknown]
  - Renal impairment [Unknown]
  - Dehydration [Unknown]
  - Platelet count decreased [Unknown]
  - Vomiting [Unknown]
  - Malnutrition [Unknown]

NARRATIVE: CASE EVENT DATE: 20230222
